FAERS Safety Report 9068225 (Version 1)
Quarter: 2013Q1

REPORT INFORMATION
  Report Type: Spontaneous
  Country: FR (occurrence: FR)
  Receive Date: 20130128
  Receipt Date: 20130128
  Transmission Date: 20140127
  Serious: Yes (Hospitalization)
  Sender: FDA-Public Use
  Company Number: FR-ASTRAZENECA-2013SE04123

PATIENT
  Age: 209 Day
  Sex: Female

DRUGS (5)
  1. INEXIUM [Suspect]
     Indication: GASTROOESOPHAGEAL REFLUX DISEASE
     Route: 048
     Dates: start: 20120703, end: 20121003
  2. POLYSILAN [Concomitant]
     Indication: GASTROOESOPHAGEAL REFLUX DISEASE
     Route: 048
     Dates: start: 20120703
  3. PENTAVAC [Concomitant]
     Route: 048
     Dates: start: 20120601
  4. PENTAVAC [Concomitant]
     Route: 048
     Dates: start: 20120731
  5. PENTAVAC [Concomitant]
     Route: 048
     Dates: start: 20120904

REACTIONS (4)
  - Lymphocytosis [Recovering/Resolving]
  - Agranulocytosis [Recovering/Resolving]
  - Hypouricaemia [Unknown]
  - Hyperkalaemia [Unknown]
